FAERS Safety Report 8534625-9 (Version None)
Quarter: 2012Q3

REPORT INFORMATION
  Report Type: 
  Country: None (occurrence: None)
  Receive Date: 20120724
  Receipt Date: 20120710
  Transmission Date: 20120928
  Serious: Yes (Hospitalization)
  Sender: FDA-Public Use
  Company Number: US-ENDO PHARMACEUTICALS INC.-DOXY20120004

PATIENT
  Sex: Female
  Weight: 70.37 kg

DRUGS (1)
  1. DOXYCYCLINE HYCLATE [Suspect]
     Indication: ROCKY MOUNTAIN SPOTTED FEVER
     Route: 048
     Dates: start: 20120620, end: 20120629

REACTIONS (4)
  - GAIT DISTURBANCE [None]
  - FALL [None]
  - DISTURBANCE IN ATTENTION [None]
  - HYPOKALAEMIA [None]
